FAERS Safety Report 9249296 (Version 2)
Quarter: 2013Q2

REPORT INFORMATION
  Report Type: Spontaneous
  Country: US (occurrence: US)
  Receive Date: 20130423
  Receipt Date: 20130425
  Transmission Date: 20140414
  Serious: No
  Sender: FDA-Public Use
  Company Number: US-009507513-1304USA013660

PATIENT
  Age: 20 Year
  Sex: Female

DRUGS (2)
  1. IMPLANON [Suspect]
     Dosage: 1 ROD FOR 3 YEARS
     Route: 059
     Dates: start: 20090910, end: 20090917
  2. IMPLANON [Suspect]
     Dosage: 1 ROD FOR 3 YEARS
     Route: 059
     Dates: start: 20091111, end: 201206

REACTIONS (6)
  - Infertility female [Unknown]
  - Device expulsion [Unknown]
  - Device expulsion [Unknown]
  - Device dislocation [Unknown]
  - Implant site infection [Unknown]
  - Medical device complication [Unknown]
